FAERS Safety Report 7410949-3 (Version None)
Quarter: 2011Q1

REPORT INFORMATION
  Report Type: 
  Country: None (occurrence: None)
  Receive Date: 20110302
  Receipt Date: 20110110
  Transmission Date: 20110831
  Serious: No
  Sender: FDA-Public Use
  Company Number: 015353

PATIENT
  Sex: Female

DRUGS (1)
  1. CIMZIA [Suspect]
     Indication: CROHN'S DISEASE
     Dosage: PFS SUBCUTANEOUS
     Route: 058
     Dates: start: 20100601

REACTIONS (10)
  - FREQUENT BOWEL MOVEMENTS [None]
  - OVARIAN CYST [None]
  - ABDOMINAL PAIN [None]
  - VOMITING [None]
  - NAUSEA [None]
  - URINARY TRACT INFECTION [None]
  - DYSPEPSIA [None]
  - HAEMATOCHEZIA [None]
  - ABDOMINAL PAIN UPPER [None]
  - BACK PAIN [None]
